FAERS Safety Report 4709486-6 (Version None)
Quarter: 2005Q3

REPORT INFORMATION
  Report Type: 
  Country: None (occurrence: None)
  Receive Date: 20050707
  Receipt Date: 20050707
  Transmission Date: 20060218
  Serious: Yes (Hospitalization)
  Sender: FDA-Public Use
  Company Number: None

PATIENT
  Sex: Male

DRUGS (2)
  1. ARANESP [Suspect]
     Indication: ANAEMIA
     Dosage: 200 MCG SQ WEEKLY
     Route: 058
     Dates: start: 20050617
  2. GEMZAR [Suspect]
     Indication: PANCREATIC CARCINOMA METASTATIC
     Dosage: 2000 MG IV ONCE
     Route: 042
     Dates: start: 20050628

REACTIONS (2)
  - HYPOGLYCAEMIA [None]
  - HYPOTENSION [None]
